FAERS Safety Report 9254836 (Version 3)
Quarter: 2013Q4

REPORT INFORMATION
  Report Type: Spontaneous
  Country: US (occurrence: None)
  Receive Date: 20130418
  Receipt Date: 20131113
  Transmission Date: 20140711
  Serious: Yes (Other)
  Sender: FDA-Public Use
  Company Number: AUR-APL-2013-03197

PATIENT
  Age: 58 Year
  Sex: Female
  Weight: 57.14 kg

DRUGS (3)
  1. LISINOPRIL (LISINOPRIL) [Suspect]
     Indication: BLOOD PRESSURE INCREASED
     Route: 048
     Dates: start: 2013
  2. METOPROLOL (METOPROLOL) [Suspect]
     Indication: BLOOD PRESSURE INCREASED
     Route: 048
     Dates: start: 2013
  3. EFFEXOR XR (VENLAFAXINE HYDROCHLORIDE) (75 MILLIGRAM, CAPSULE) (VENLAFAXINE HYDROCHLORIDE) [Suspect]
     Indication: DEPRESSION
     Route: 048

REACTIONS (2)
  - Blood pressure increased [None]
  - Osteoporosis [None]
